FAERS Safety Report 22618655 (Version 1)
Quarter: 2023Q2

REPORT INFORMATION
  Report Type: Spontaneous
  Country: US (occurrence: US)
  Receive Date: 20230620
  Receipt Date: 20230620
  Transmission Date: 20230721
  Serious: No
  Sender: FDA-Public Use
  Company Number: US-PFM-2022-09062

PATIENT
  Age: 0 Year
  Sex: Female
  Weight: 8.01 kg

DRUGS (1)
  1. HEMANGEOL [Suspect]
     Active Substance: PROPRANOLOL HYDROCHLORIDE
     Indication: Haemangioma
     Dosage: 3.2 ML, BID (2/DAY)
     Route: 048
     Dates: start: 20220701

REACTIONS (1)
  - Rash [Unknown]

NARRATIVE: CASE EVENT DATE: 20221220
